FAERS Safety Report 7148678-6 (Version None)
Quarter: 2010Q4

REPORT INFORMATION
  Report Type: 
  Country: None (occurrence: None)
  Receive Date: 20101209
  Receipt Date: 20101129
  Transmission Date: 20110411
  Serious: Yes (Other)
  Sender: FDA-Public Use
  Company Number: IT-ROCHE-537788

PATIENT

DRUGS (4)
  1. BEVACIZUMAB [Suspect]
     Dosage: DAYS 1 AND 15, FORM: INFUSION
     Route: 042
  2. FLUOROURACIL [Suspect]
     Dosage: TIMED-FLAT-INFUSION DAYS 1-2, 8-9, 15-16 AND 22-23
     Route: 065
  3. IRINOTECAN HCL [Suspect]
     Dosage: WEEK ALTERNATING DOSING, FORM: INFUSION
     Route: 042
  4. OXALIPLATIN [Suspect]
     Dosage: AT THREE INCREASING DOSING LEVELS (60-70-90 MG/M2) DAYS 8 AND 22 EVERY 4 WEEKS, FORM; INFUSION
     Route: 042

REACTIONS (15)
  - ALOPECIA [None]
  - ASTHENIA [None]
  - DIARRHOEA [None]
  - EPISTAXIS [None]
  - ERYTHEMA [None]
  - HYPERTENSION [None]
  - HYPERTRANSAMINASAEMIA [None]
  - HYPOKALAEMIA [None]
  - MUCOSAL INFLAMMATION [None]
  - NAUSEA [None]
  - NEUROTOXICITY [None]
  - NEUTROPENIA [None]
  - STOMATITIS [None]
  - THROMBOCYTOPENIA [None]
  - VOMITING [None]
